FAERS Safety Report 18338838 (Version 1)
Quarter: 2020Q4

REPORT INFORMATION
  Report Type: Spontaneous
  Country: US (occurrence: US)
  Receive Date: 20201002
  Receipt Date: 20201002
  Transmission Date: 20210113
  Serious: Yes (Disabling)
  Sender: FDA-Public Use
  Company Number: None

PATIENT
  Age: 70 Year
  Sex: Female
  Weight: 60.3 kg

DRUGS (3)
  1. VITAMINE D [Concomitant]
     Active Substance: CHOLECALCIFEROL
  2. RECLAST [Concomitant]
     Active Substance: ZOLEDRONIC ACID
  3. PROLIA [Suspect]
     Active Substance: DENOSUMAB
     Indication: OSTEOPOROSIS
     Dosage: ?          OTHER FREQUENCY:EVERY 6 MONTHS;?
     Route: 058

REACTIONS (4)
  - Fatigue [None]
  - Bone density decreased [None]
  - Gastrointestinal disorder [None]
  - Spinal fracture [None]
